FAERS Safety Report 15645247 (Version 2)
Quarter: 2018Q4

REPORT INFORMATION
  Report Type: Spontaneous
  Country: US (occurrence: US)
  Receive Date: 20181121
  Receipt Date: 20181130
  Transmission Date: 20190205
  Serious: No
  Sender: FDA-Public Use
  Company Number: US-PFIZER INC-2018448164

PATIENT
  Age: 95 Year
  Sex: Female
  Weight: 66.21 kg

DRUGS (1)
  1. XALATAN [Suspect]
     Active Substance: LATANOPROST
     Dosage: UNK

REACTIONS (3)
  - Product container issue [Unknown]
  - Eye irritation [Unknown]
  - Incorrect dose administered [Unknown]
